FAERS Safety Report 8923513 (Version 1)
Quarter: 2012Q4

REPORT INFORMATION
  Report Type: Spontaneous
  Country: US (occurrence: None)
  Receive Date: 20121115
  Receipt Date: 20121115
  Transmission Date: 20130627
  Serious: No
  Sender: FDA-Public Use
  Company Number: None

PATIENT
  Age: 40 Year
  Sex: Female

DRUGS (1)
  1. AUGMENTIN [Suspect]
     Dates: start: 20100815, end: 20120825

REACTIONS (11)
  - Fatigue [None]
  - Nausea [None]
  - Abdominal pain [None]
  - Hypotension [None]
  - Renal failure acute [None]
  - Hepatic cirrhosis [None]
  - Drug-induced liver injury [None]
  - Autoimmune hepatitis [None]
  - Liver transplant [None]
  - Confusional state [None]
  - Mental status changes [None]
